FAERS Safety Report 14849713 (Version 17)
Quarter: 2025Q1

REPORT INFORMATION
  Report Type: Report from Study
  Country: CA (occurrence: CA)
  Receive Date: 20180504
  Receipt Date: 20250214
  Transmission Date: 20250408
  Serious: Yes (Other)
  Sender: PFIZER
  Company Number: CA-TAKEDA-2018TEU003033

PATIENT
  Age: 62 Year
  Sex: Female
  Weight: 97 kg

DRUGS (16)
  1. PANTOPRAZOLE [Suspect]
     Active Substance: PANTOPRAZOLE
     Dosage: UNK UNK, 2X/DAY
     Route: 065
     Dates: start: 20180416
  2. CORTEF [Suspect]
     Active Substance: HYDROCORTISONE
     Route: 065
  3. SIGNIFOR [Suspect]
     Active Substance: PASIREOTIDE DIASPARTATE
     Indication: Pituitary-dependent Cushing^s syndrome
     Dosage: 0.3 MG, 2X/DAY
     Route: 030
     Dates: start: 20180308
  4. SIGNIFOR [Suspect]
     Active Substance: PASIREOTIDE DIASPARTATE
     Dosage: 0.6 MG, 2X/DAY
     Route: 030
     Dates: start: 201803, end: 20180416
  5. SIGNIFOR [Suspect]
     Active Substance: PASIREOTIDE DIASPARTATE
     Dosage: 0.9 MG, 2X/DAY
     Route: 058
     Dates: start: 20180801
  6. UREA [Concomitant]
     Active Substance: UREA
  7. HYDROCHLOROTHIAZIDE\IRBESARTAN [Concomitant]
     Active Substance: HYDROCHLOROTHIAZIDE\IRBESARTAN
     Route: 065
  8. CALCIUM [Concomitant]
     Active Substance: CALCIUM
     Route: 065
  9. VITAMIN D [Concomitant]
     Active Substance: VITAMIN D NOS
     Route: 065
  10. JANUMET [Concomitant]
     Active Substance: METFORMIN HYDROCHLORIDE\SITAGLIPTIN PHOSPHATE
     Route: 065
  11. IRON [Concomitant]
     Active Substance: IRON
     Route: 065
  12. CABERGOLINE [Concomitant]
     Active Substance: CABERGOLINE
     Route: 065
  13. UREA [Concomitant]
     Active Substance: UREA
     Route: 065
  14. PANTOPRAZOLE SODIUM [Concomitant]
     Active Substance: PANTOPRAZOLE SODIUM
     Route: 065
  15. CRESTOR [Concomitant]
     Active Substance: ROSUVASTATIN CALCIUM
     Route: 065
  16. FERROUS SULFATE [Concomitant]
     Active Substance: FERROUS SULFATE
     Route: 065

REACTIONS (38)
  - Peripheral swelling [Recovered/Resolved]
  - Gait inability [Recovered/Resolved]
  - Injection site vesicles [Unknown]
  - Uterine polyp [Unknown]
  - Hydrothorax [Recovered/Resolved]
  - Chest pain [Recovered/Resolved]
  - Menstrual disorder [Recovering/Resolving]
  - Dysuria [Not Recovered/Not Resolved]
  - Dyspnoea [Recovered/Resolved]
  - Abnormal faeces [Recovered/Resolved]
  - Vomiting [Recovered/Resolved]
  - Blood glucose abnormal [Recovered/Resolved]
  - Uterine haemorrhage [Unknown]
  - Injection site pain [Recovered/Resolved]
  - Dyspnoea exertional [Recovered/Resolved]
  - Frequent bowel movements [Recovered/Resolved]
  - Pain [Recovered/Resolved]
  - Weight increased [Recovered/Resolved]
  - Furuncle [Recovered/Resolved]
  - Abdominal pain upper [Unknown]
  - Dizziness [Recovered/Resolved]
  - Abdominal pain lower [Recovered/Resolved]
  - Headache [Recovered/Resolved]
  - Hyperglycaemia [Unknown]
  - Dysphagia [Recovered/Resolved]
  - Somnolence [Recovered/Resolved]
  - Fatigue [Recovered/Resolved]
  - Nausea [Recovered/Resolved]
  - Abdominal pain lower [Recovered/Resolved]
  - Libido increased [Recovered/Resolved]
  - Asthenia [Recovered/Resolved]
  - Blood urine present [Unknown]
  - Abdominal discomfort [Unknown]
  - Uterine mass [Unknown]
  - Balance disorder [Unknown]
  - Vaginal haemorrhage [Unknown]
  - Abdominal pain [Unknown]
  - Nausea [Unknown]

NARRATIVE: CASE EVENT DATE: 20180301
